FAERS Safety Report 6361010-0 (Version None)
Quarter: 2009Q3

REPORT INFORMATION
  Report Type: 
  Country: None (occurrence: None)
  Receive Date: 20090915
  Receipt Date: 20090915
  Transmission Date: 20100115
  Serious: Yes (Life-Threatening, Hospitalization, Disabling, Other)
  Sender: FDA-Public Use
  Company Number: None

PATIENT
  Age: 31 Year
  Sex: Female
  Weight: 89.8122 kg

DRUGS (1)
  1. ADDERALL 30 [Suspect]
     Indication: NARCOLEPSY
     Dosage: 60 MG 30 MG TWICE DAILY PO; 60 MG 15 MG 4 TIMES DAILY PO
     Route: 048
     Dates: start: 20081015, end: 20090701

REACTIONS (11)
  - DIZZINESS [None]
  - DYSARTHRIA [None]
  - HEART RATE INCREASED [None]
  - HYPERTENSION [None]
  - NAUSEA [None]
  - PRESYNCOPE [None]
  - PRODUCT SUBSTITUTION ISSUE [None]
  - REACTION TO DRUG EXCIPIENTS [None]
  - REFLEXES ABNORMAL [None]
  - TREMOR [None]
  - WEIGHT DECREASED [None]
